FAERS Safety Report 23402778 (Version 3)
Quarter: 2024Q1

REPORT INFORMATION
  Report Type: Report from Study
  Country: ES (occurrence: ES)
  Receive Date: 20240115
  Receipt Date: 20240227
  Transmission Date: 20240409
  Serious: Yes (Hospitalization)
  Sender: FDA-Public Use
  Company Number: ES-ABBVIE-5584924

PATIENT
  Age: 53 Year
  Sex: Male
  Weight: 73 kg

DRUGS (2)
  1. CARBIDOPA\LEVODOPA [Suspect]
     Active Substance: CARBIDOPA\LEVODOPA
     Indication: Parkinson^s disease
     Route: 050
     Dates: start: 20210520, end: 202402
  2. CARBIDOPA\LEVODOPA [Suspect]
     Active Substance: CARBIDOPA\LEVODOPA
     Dosage: CHANGED DOSES
     Route: 050
     Dates: start: 202402

REACTIONS (6)
  - Infection [Unknown]
  - Unevaluable event [Unknown]
  - Compulsive shopping [Unknown]
  - Impulse-control disorder [Not Recovered/Not Resolved]
  - Decreased appetite [Not Recovered/Not Resolved]
  - Hypersexuality [Unknown]

NARRATIVE: CASE EVENT DATE: 20231201
